FAERS Safety Report 4459572-3 (Version None)
Quarter: 2004Q3

REPORT INFORMATION
  Report Type: 
  Country: None (occurrence: None)
  Receive Date: 20040910
  Receipt Date: 20040608
  Transmission Date: 20050211
  Serious: No
  Sender: FDA-Public Use
  Company Number: 2004217986US

PATIENT
  Age: 77 Year
  Sex: Male

DRUGS (1)
  1. BEXTRA [Suspect]

REACTIONS (4)
  - DRY MOUTH [None]
  - DRY THROAT [None]
  - MOUTH ULCERATION [None]
  - THROAT TIGHTNESS [None]
